FAERS Safety Report 7061382-8 (Version None)
Quarter: 2010Q4

REPORT INFORMATION
  Report Type: 
  Country: None (occurrence: None)
  Receive Date: 20101026
  Receipt Date: 20101015
  Transmission Date: 20110411
  Serious: Yes (Hospitalization, Other)
  Sender: FDA-Public Use
  Company Number: PHHY2010VE69482

PATIENT

DRUGS (3)
  1. ACLASTA [Suspect]
     Indication: OSTEOPOROSIS
     Dosage: 5MG
     Route: 042
     Dates: start: 20100501
  2. CITRACAL [Concomitant]
     Indication: CHONDROPATHY
  3. PHARMATON [Concomitant]

REACTIONS (5)
  - ABASIA [None]
  - FALL [None]
  - FEMUR FRACTURE [None]
  - PAIN [None]
  - SURGERY [None]
